FAERS Safety Report 8888622 (Version 1)
Quarter: 2012Q4

REPORT INFORMATION
  Report Type: Report from Study
  Country: US (occurrence: US)
  Receive Date: 20121106
  Receipt Date: 20121106
  Transmission Date: 20130627
  Serious: Yes (Hospitalization)
  Sender: FDA-Public Use
  Company Number: US-ROCHE-1151352

PATIENT
  Age: 69 Year
  Sex: Male
  Weight: 82.1 kg

DRUGS (7)
  1. BEVACIZUMAB [Suspect]
     Indication: CARCINOID TUMOUR
     Dosage: over 30-90 min, day 1, last dose on 13-sep-2012
     Route: 042
     Dates: start: 20120406
  2. OCTREOTIDE [Suspect]
     Indication: CARCINOID TUMOUR
     Dosage: short-acting, daily, day 1,last dose on 13-sep-2012
     Route: 058
     Dates: start: 20120406
  3. OCTREOTIDE [Suspect]
     Dosage: day 1
     Route: 030
     Dates: start: 20120406
  4. LISINOPRIL [Suspect]
     Indication: PRODUCT USED FOR UNKNOWN INDICATION
     Route: 065
  5. METOPROLOL SUCCINATE [Suspect]
     Indication: PRODUCT USED FOR UNKNOWN INDICATION
     Route: 065
  6. NORVASC [Suspect]
     Indication: PRODUCT USED FOR UNKNOWN INDICATION
     Route: 065
  7. TRIAMTERENE/HCTZ [Suspect]
     Indication: PRODUCT USED FOR UNKNOWN INDICATION
     Route: 065

REACTIONS (5)
  - Syncope [Recovered/Resolved]
  - Hypotension [Recovered/Resolved]
  - Dehydration [Recovered/Resolved]
  - Urinary tract infection [Recovered/Resolved]
  - Sinus tachycardia [Recovered/Resolved]
